FAERS Safety Report 5922572-8 (Version None)
Quarter: 2008Q4

REPORT INFORMATION
  Report Type: 
  Country: None (occurrence: None)
  Receive Date: 20081017
  Receipt Date: 20081008
  Transmission Date: 20090506
  Serious: Yes (Death, Hospitalization)
  Sender: FDA-Public Use
  Company Number: JP-BAYER-200812197BYL

PATIENT
  Age: 54 Year
  Sex: Male
  Weight: 49 kg

DRUGS (30)
  1. NEXAVAR [Suspect]
     Indication: RENAL CELL CARCINOMA STAGE IV
     Dosage: AS USED: 800 MG  UNIT DOSE: 200 MG
     Route: 048
     Dates: start: 20080616, end: 20080827
  2. NOVAMIN [Concomitant]
     Dosage: AS USED: 10 MG
     Route: 048
     Dates: start: 20080618, end: 20080720
  3. MYSLEE [Concomitant]
     Dosage: AS USED: 5 MG
     Route: 048
     Dates: start: 20080618
  4. FENTANYL CITRATE [Concomitant]
     Dosage: AS USED: 2.5 MG  UNIT DOSE: 2.5 MG
     Route: 062
     Dates: start: 20080618, end: 20080710
  5. FENTANYL CITRATE [Concomitant]
     Dosage: AS USED: 10 MG
     Route: 062
     Dates: start: 20080723
  6. FENTANYL CITRATE [Concomitant]
     Dosage: AS USED: 5 MG
     Route: 062
     Dates: start: 20080711, end: 20080716
  7. FENTANYL CITRATE [Concomitant]
     Dosage: AS USED: 7.5 MG
     Route: 062
     Dates: start: 20080717, end: 20080722
  8. MOHRUS TAPE [Concomitant]
     Route: 062
     Dates: start: 20080618
  9. DAIOU (RHUBARB) [Concomitant]
     Route: 048
     Dates: start: 20080604
  10. LOXONIN [Concomitant]
     Dosage: UNIT DOSE: 60 MG
     Route: 048
     Dates: start: 20080604
  11. MUCOSTA [Concomitant]
     Dosage: UNIT DOSE: 100 MG
     Route: 048
     Dates: start: 20080604
  12. RABEPRAZOLE SODIUM [Concomitant]
     Route: 048
     Dates: start: 20080604
  13. ZOLOFT [Concomitant]
     Route: 048
     Dates: start: 20080604
  14. LAXOBERON [Concomitant]
     Route: 048
     Dates: start: 20080604
  15. ARGAMATE [Concomitant]
     Dosage: UNIT DOSE: 25 G
     Route: 048
     Dates: start: 20080604
  16. OXINORM [Concomitant]
     Route: 048
     Dates: start: 20080621
  17. CONIEL [Concomitant]
     Indication: HYPERTENSION
     Dosage: UNIT DOSE: 4 MG
     Route: 048
     Dates: start: 20080623
  18. NERIPROCT [Concomitant]
     Route: 061
     Dates: start: 20080626
  19. BLOPRESS [Concomitant]
     Indication: HYPERTENSION
     Dosage: TOTAL DAILY DOSE: 8 MG  UNIT DOSE: 8 MG
     Route: 048
     Dates: start: 20080628
  20. PRIMPERAN [Concomitant]
     Dosage: UNIT DOSE: 5 MG
     Route: 048
     Dates: start: 20080630
  21. WHITE PETROLATUM [Concomitant]
     Route: 061
     Dates: start: 20080702, end: 20080702
  22. GASMOTIN [Concomitant]
     Dosage: UNIT DOSE: 5 MG
     Route: 048
     Dates: start: 20080702
  23. LACTULOSE [Concomitant]
     Route: 048
     Dates: start: 20080702
  24. LEVOTHYROXINE SODIUM [Concomitant]
     Route: 048
     Dates: start: 20080709
  25. SERENACE [Concomitant]
     Route: 048
     Dates: start: 20080711
  26. PENTAZOCINE LACTATE [Concomitant]
     Dosage: UNIT DOSE: 25 MG
     Route: 048
     Dates: start: 20080724
  27. SELTOUCH [Concomitant]
     Route: 062
  28. GASCON [Concomitant]
     Dosage: UNIT DOSE: 40 MG
     Route: 048
     Dates: start: 20080730
  29. LECICARBON [Concomitant]
     Dosage: TOTAL DAILY DOSE: 1 DF  UNIT DOSE: 1 DF
     Dates: start: 20080806, end: 20080806
  30. ZINC OXIDE [Concomitant]
     Route: 061
     Dates: start: 20080818

REACTIONS (5)
  - HYPERTENSION [None]
  - PALMAR-PLANTAR ERYTHRODYSAESTHESIA SYNDROME [None]
  - PLEURAL EFFUSION [None]
  - RECTAL ULCER [None]
  - RENAL CELL CARCINOMA STAGE IV [None]
